FAERS Safety Report 20069188 (Version 1)
Quarter: 2021Q4

REPORT INFORMATION
  Report Type: Spontaneous
  Country: US (occurrence: US)
  Receive Date: 20211115
  Receipt Date: 20211115
  Transmission Date: 20220303
  Serious: No
  Sender: FDA-Public Use
  Company Number: US-TEVA-2021-US-1976337

PATIENT
  Age: 57 Year

DRUGS (2)
  1. AJOVY [Suspect]
     Active Substance: FREMANEZUMAB-VFRM
     Indication: Migraine
     Dosage: TAKING AJOVY FOR ALMOST TWO YEARS
     Route: 065
  2. AJOVY [Suspect]
     Active Substance: FREMANEZUMAB-VFRM

REACTIONS (8)
  - Pruritus [Unknown]
  - Feeling abnormal [Unknown]
  - Dizziness [Unknown]
  - Palpitations [Unknown]
  - Electrocardiogram abnormal [Unknown]
  - Myalgia [Unknown]
  - Bone pain [Unknown]
  - Product dose omission issue [Unknown]
